FAERS Safety Report 18989077 (Version 2)
Quarter: 2021Q1

REPORT INFORMATION
  Report Type: Report from Study
  Country: IT (occurrence: IT)
  Receive Date: 20210309
  Receipt Date: 20210315
  Transmission Date: 20210420
  Serious: Yes (Other)
  Sender: FDA-Public Use
  Company Number: IT-AUROBINDO-AUR-APL-2021-009441

PATIENT
  Age: 25 Year
  Sex: Female

DRUGS (1)
  1. LEVETIRACETAM. [Suspect]
     Active Substance: LEVETIRACETAM
     Indication: JUVENILE MYOCLONIC EPILEPSY
     Dosage: 2500 MILLIGRAM, ONCE A DAY
     Route: 065

REACTIONS (3)
  - Generalised tonic-clonic seizure [Unknown]
  - Therapeutic product effect incomplete [Unknown]
  - Myoclonic epilepsy [Unknown]
